FAERS Safety Report 4971918-6 (Version None)
Quarter: 2006Q2

REPORT INFORMATION
  Report Type: 
  Country: None (occurrence: None)
  Receive Date: 20060413
  Receipt Date: 20060403
  Transmission Date: 20061013
  Serious: Yes (Death, Hospitalization)
  Sender: FDA-Public Use
  Company Number: IL-MERCK-0604USA00417

PATIENT
  Age: 69 Year
  Sex: Male
  Weight: 90 kg

DRUGS (1)
  1. VIOXX [Suspect]
     Indication: GOUT
     Route: 048
     Dates: start: 19990101, end: 20010101

REACTIONS (4)
  - BLOOD PRESSURE ABNORMAL [None]
  - DEATH [None]
  - MYOCARDIAL INFARCTION [None]
  - SYNCOPE [None]
